FAERS Safety Report 4811774-X (Version None)
Quarter: 2005Q4

REPORT INFORMATION
  Report Type: 
  Country: None (occurrence: None)
  Receive Date: 20051028
  Receipt Date: 20050415
  Transmission Date: 20060501
  Serious: Yes (Other)
  Sender: FDA-Public Use
  Company Number: PHEH2005US04387

PATIENT
  Sex: Female

DRUGS (3)
  1. AREDIA [Suspect]
     Indication: METASTASES TO BONE
     Dosage: 90 MG Q4WKS
     Dates: start: 20040501, end: 20041124
  2. AREDIA [Suspect]
     Dates: start: 20050613, end: 20050901
  3. ZOMETA [Suspect]
     Indication: BREAST CANCER METASTATIC
     Dosage: 4MG Q4WKS
     Dates: start: 20041201, end: 20050301

REACTIONS (3)
  - OSTEONECROSIS [None]
  - TOOTH ABSCESS [None]
  - TOOTH INFECTION [None]
